FAERS Safety Report 16697995 (Version 1)
Quarter: 2019Q3

REPORT INFORMATION
  Report Type: Spontaneous
  Country: IT (occurrence: IT)
  Receive Date: 20190813
  Receipt Date: 20190813
  Transmission Date: 20191004
  Serious: Yes (Other)
  Sender: FDA-Public Use
  Company Number: IT-TAKEDA-2019TEU009422

PATIENT
  Age: 71 Year
  Sex: Male

DRUGS (4)
  1. KARVEA [Concomitant]
     Active Substance: IRBESARTAN
     Dosage: UNK
  2. PIOGLITAZONE. [Suspect]
     Active Substance: PIOGLITAZONE
     Indication: PRODUCT USED FOR UNKNOWN INDICATION
     Dosage: 30 MILLIGRAM, QD
     Route: 048
     Dates: start: 20080301, end: 20190301
  3. FULCROSUPRA [Concomitant]
     Active Substance: FENOFIBRATE
     Dosage: 145 MILLIGRAM
     Route: 048
  4. GLUCOBAY [Concomitant]
     Active Substance: ACARBOSE
     Dosage: 50 MILLIGRAM
     Route: 048

REACTIONS (2)
  - Haematuria [Unknown]
  - Bladder cancer [Unknown]

NARRATIVE: CASE EVENT DATE: 20190301
